FAERS Safety Report 6360316-9 (Version None)
Quarter: 2009Q3

REPORT INFORMATION
  Report Type: 
  Country: None (occurrence: None)
  Receive Date: 20090917
  Receipt Date: 20090904
  Transmission Date: 20100115
  Serious: No
  Sender: FDA-Public Use
  Company Number: US-B.I. PHARMACEUTICALS,INC./RIDGEFIELD-2009-BP-10601BP

PATIENT
  Age: 15 Year
  Sex: Female

DRUGS (2)
  1. ZANTAC [Suspect]
     Dosage: 150 MG
     Dates: start: 20090701, end: 20090801
  2. ZANTAC [Suspect]
     Dosage: 150 MG
     Route: 048
     Dates: start: 20090601, end: 20090701

REACTIONS (1)
  - DRUG INEFFECTIVE [None]
